FAERS Safety Report 4540361-6 (Version None)
Quarter: 2004Q4

REPORT INFORMATION
  Report Type: 
  Country: None (occurrence: None)
  Receive Date: 20041223
  Receipt Date: 20041213
  Transmission Date: 20050328
  Serious: Yes (Hospitalization)
  Sender: FDA-Public Use
  Company Number: 2004112284

PATIENT
  Age: 60 Year
  Sex: Female

DRUGS (5)
  1. MINIPRESS XL [Suspect]
     Indication: HYPERTENSION
     Dosage: 5 MG (5 MG, 1 IN 1 D), ORAL
     Route: 048
  2. AMLODIPINE [Concomitant]
  3. ERYTHROPOIETIN HUMAN (ERYTHROPOIETIN HUMAN) [Concomitant]
  4. NEBIVOLOL (NEBIVOLOL) [Concomitant]
  5. INSULIN [Concomitant]

REACTIONS (2)
  - GASTROENTERITIS [None]
  - RENAL FAILURE ACUTE [None]
